FAERS Safety Report 6763204-9 (Version None)
Quarter: 2010Q2

REPORT INFORMATION
  Report Type: 
  Country: None (occurrence: None)
  Receive Date: 20100609
  Receipt Date: 20100607
  Transmission Date: 20101027
  Serious: Yes (Other)
  Sender: FDA-Public Use
  Company Number: US-MERCK-1002USA02326

PATIENT
  Age: 70 Year
  Sex: Female
  Weight: 58 kg

DRUGS (3)
  1. FOSAMAX [Suspect]
     Indication: OSTEOPOROSIS
     Route: 048
     Dates: start: 20040101, end: 20090501
  2. FOSAMAX [Suspect]
     Route: 048
     Dates: start: 20080819
  3. FOSAMAX [Suspect]
     Route: 048
     Dates: start: 20020514

REACTIONS (14)
  - ADVERSE DRUG REACTION [None]
  - ARTHRALGIA [None]
  - BONE DENSITY DECREASED [None]
  - BREAST PAIN [None]
  - DIVERTICULUM [None]
  - DRUG INTOLERANCE [None]
  - FEMUR FRACTURE [None]
  - GASTRIC DILATATION [None]
  - HEADACHE [None]
  - HYPERLIPIDAEMIA [None]
  - IRRITABLE BOWEL SYNDROME [None]
  - LEFT VENTRICULAR DYSFUNCTION [None]
  - SINUS TACHYCARDIA [None]
  - VENTRICULAR EXTRASYSTOLES [None]
